FAERS Safety Report 4845318-3 (Version None)
Quarter: 2005Q4

REPORT INFORMATION
  Report Type: 
  Country: None (occurrence: None)
  Receive Date: 20051205
  Receipt Date: 20051122
  Transmission Date: 20060501
  Serious: Yes (Hospitalization)
  Sender: FDA-Public Use
  Company Number: FR-GLAXOSMITHKLINE-B0401356A

PATIENT
  Age: 84 Year
  Sex: Female

DRUGS (5)
  1. DEROXAT [Suspect]
     Dosage: 20MG PER DAY
     Route: 048
  2. NORSET [Suspect]
     Dosage: 1UNIT PER DAY
     Route: 048
     Dates: end: 20050429
  3. EXELON [Suspect]
     Dosage: 6MG TWICE PER DAY
     Route: 048
     Dates: start: 19990101, end: 20050429
  4. MEMANTINE HCL [Suspect]
     Dosage: 10MG PER DAY
     Route: 048
     Dates: end: 20050429
  5. PERSANTINE [Suspect]
     Dosage: 75MG PER DAY
     Route: 048

REACTIONS (4)
  - CONFUSIONAL STATE [None]
  - FALL [None]
  - MALAISE [None]
  - ORTHOSTATIC HYPOTENSION [None]
